FAERS Safety Report 16077882 (Version 1)
Quarter: 2019Q1

REPORT INFORMATION
  Report Type: Spontaneous
  Country: IN (occurrence: IN)
  Receive Date: 20190315
  Receipt Date: 20190315
  Transmission Date: 20190418
  Serious: Yes (Hospitalization)
  Sender: FDA-Public Use
  Company Number: IN-JNJFOC-20190320162

PATIENT

DRUGS (2)
  1. PENTAVALENT VACCINE [Concomitant]
     Indication: PROPHYLAXIS
     Route: 065
  2. TRAMADOL HYDROCHLORIDE. [Suspect]
     Active Substance: TRAMADOL HYDROCHLORIDE
     Indication: PRODUCT USED FOR UNKNOWN INDICATION
     Route: 048

REACTIONS (9)
  - Product dispensing error [Unknown]
  - Product label confusion [Unknown]
  - Respiratory distress [Unknown]
  - Hypersomnia [Unknown]
  - Loss of consciousness [Unknown]
  - Depressed level of consciousness [Unknown]
  - Wrong product administered [Unknown]
  - Pyrexia [Unknown]
  - Lethargy [Unknown]
